FAERS Safety Report 5399067-6 (Version None)
Quarter: 2007Q3

REPORT INFORMATION
  Report Type: 
  Country: None (occurrence: None)
  Receive Date: 20070725
  Receipt Date: 20070725
  Transmission Date: 20080115
  Serious: Yes (Hospitalization)
  Sender: FDA-Public Use
  Company Number: None

PATIENT
  Age: 27 Year
  Sex: Female
  Weight: 54.4316 kg

DRUGS (3)
  1. BEVACIZUMAB 25MG/ML GENENTECH [Suspect]
     Indication: BREAST CANCER
     Dosage: 15MG/KG Q3WKS (IV)
     Route: 042
     Dates: start: 20070116, end: 20070704
  2. CYCLOPHOSPHAMIDE [Concomitant]
  3. METHOTREXATE SODIUM [Concomitant]

REACTIONS (4)
  - IMPLANT SITE REACTION [None]
  - PAIN [None]
  - WOUND DEHISCENCE [None]
  - WOUND INFECTION [None]
